FAERS Safety Report 5614387-5 (Version None)
Quarter: 2008Q1

REPORT INFORMATION
  Report Type: 
  Country: None (occurrence: None)
  Receive Date: 20080205
  Receipt Date: 20080124
  Transmission Date: 20080703
  Serious: Yes (Other)
  Sender: FDA-Public Use
  Company Number: US-PFIZER INC-2008009277

PATIENT
  Age: 48 Year
  Sex: Female

DRUGS (1)
  1. CHANTIX [Suspect]

REACTIONS (7)
  - AGITATION [None]
  - ANGER [None]
  - BIPOLAR DISORDER [None]
  - HOMICIDAL IDEATION [None]
  - IRRITABILITY [None]
  - MALAISE [None]
  - RESTLESSNESS [None]
